APPROVED DRUG PRODUCT: EULEXIN
Active Ingredient: FLUTAMIDE
Strength: 125MG **Federal Register determination that product was not discontinued or withdrawn for safety or effectiveness reasons**
Dosage Form/Route: CAPSULE;ORAL
Application: N018554 | Product #001
Applicant: SCHERING CORP SUB SCHERING PLOUGH CORP
Approved: Jan 27, 1989 | RLD: Yes | RS: No | Type: DISCN